FAERS Safety Report 23896570 (Version 2)
Quarter: 2024Q3

REPORT INFORMATION
  Report Type: Spontaneous
  Country: CH (occurrence: CH)
  Receive Date: 20240524
  Receipt Date: 20240726
  Transmission Date: 20241017
  Serious: Yes (Other)
  Sender: TEVA
  Company Number: CH-TEVA-VS-3201087

PATIENT
  Age: 49 Year
  Sex: Female

DRUGS (2)
  1. PACLITAXEL [Suspect]
     Active Substance: PACLITAXEL
     Indication: Breast cancer
     Dosage: DOSAGE: 6 MG/ML LIQUID 30MG/5ML, 29ML OF INFUSION, CONCENTRATION :0.51MG/ML, 1ST ADMINISTRATION
     Route: 065
     Dates: start: 20240208
  2. PACLITAXEL [Suspect]
     Active Substance: PACLITAXEL
     Indication: Breast cancer
     Dosage: DOSAGE: 6 MG/ML LIQUID 30MG/5ML, AFTER 14 ML, INITIAL FLOW AT 100 ML/H, CONCENTRATION :0.51MG/ML,...
     Route: 065
     Dates: start: 20240215, end: 20240215

REACTIONS (7)
  - Swelling face [Recovered/Resolved]
  - Nausea [Recovering/Resolving]
  - Flushing [Recovering/Resolving]
  - Blood pressure increased [Recovered/Resolved]
  - Erythema [Unknown]
  - Malaise [Unknown]
  - Drug hypersensitivity [Unknown]

NARRATIVE: CASE EVENT DATE: 20240208
